FAERS Safety Report 14881629 (Version 1)
Quarter: 2018Q2

REPORT INFORMATION
  Report Type: Spontaneous
  Country: US (occurrence: US)
  Receive Date: 20180511
  Receipt Date: 20180511
  Transmission Date: 20180711
  Serious: No
  Sender: FDA-Public Use
  Company Number: US-ELI_LILLY_AND_COMPANY-US201804007761

PATIENT
  Age: 52 Year
  Sex: Male

DRUGS (2)
  1. TALTZ [Suspect]
     Active Substance: IXEKIZUMAB
     Indication: PSORIASIS
     Dosage: 80 MG, UNKNOWN
     Route: 058
  2. SPIRIVA [Concomitant]
     Active Substance: TIOTROPIUM BROMIDE MONOHYDRATE
     Dosage: UNK, UNKNOWN
     Route: 065

REACTIONS (5)
  - Diabetes mellitus [Recovered/Resolved]
  - Drug eruption [Recovered/Resolved]
  - Injection site reaction [Recovered/Resolved]
  - Rash generalised [Recovered/Resolved]
  - Psoriasis [Recovered/Resolved]
